FAERS Safety Report 5720919-9 (Version None)
Quarter: 2008Q2

REPORT INFORMATION
  Report Type: 
  Country: None (occurrence: None)
  Receive Date: 20080425
  Receipt Date: 20080425
  Transmission Date: 20081010
  Serious: Yes (Other)
  Sender: FDA-Public Use
  Company Number: None

PATIENT
  Age: 38 Year
  Sex: Female
  Weight: 68.0396 kg

DRUGS (2)
  1. BUDEPRION XL 300 MG TEVA PHARM [Suspect]
     Indication: ANXIETY
     Dosage: 300 MG 1X/DAY PO
     Route: 048
     Dates: start: 20070801, end: 20080401
  2. BUDEPRION XL 300 MG TEVA PHARM [Suspect]
     Indication: DEPRESSION
     Dosage: 300 MG 1X/DAY PO
     Route: 048
     Dates: start: 20070801, end: 20080401

REACTIONS (7)
  - ACTIVITIES OF DAILY LIVING IMPAIRED [None]
  - ANXIETY [None]
  - DEPRESSION [None]
  - DRUG INEFFECTIVE [None]
  - HEADACHE [None]
  - SLEEP DISORDER [None]
  - THERAPEUTIC RESPONSE UNEXPECTED WITH DRUG SUBSTITUTION [None]
